FAERS Safety Report 9410014 (Version 2)
Quarter: 2013Q3

REPORT INFORMATION
  Report Type: Spontaneous
  Country: AU (occurrence: AU)
  Receive Date: 20130719
  Receipt Date: 20130722
  Transmission Date: 20140515
  Serious: Yes (Other)
  Sender: FDA-Public Use
  Company Number: AU-PFIZER INC-2013170239

PATIENT
  Age: 78 Year
  Sex: Female
  Weight: 75 kg

DRUGS (6)
  1. PRISTIQ [Suspect]
     Indication: PANIC ATTACK
     Dosage: 25 MG (HALF A 50MG TABLET), UNK
     Route: 048
  2. PRISTIQ [Suspect]
     Indication: ANXIETY
     Dosage: 50 MG, DAILY
     Route: 048
     Dates: start: 20130429
  3. PRISTIQ [Suspect]
     Indication: DEPRESSION
  4. PRISTIQ [Suspect]
     Indication: HEADACHE
  5. STILNOX [Concomitant]
     Indication: INSOMNIA
     Dosage: QUARTER-HALF AT NIGHT
     Route: 048
     Dates: start: 2009
  6. KARVEZIDE [Concomitant]
     Indication: BLOOD PRESSURE ABNORMAL
     Dosage: 1 DF, 300/12.5
     Route: 048
     Dates: start: 2008, end: 20130607

REACTIONS (13)
  - Pyuria [Recovering/Resolving]
  - Blood pressure increased [Unknown]
  - Blood pressure fluctuation [Unknown]
  - Heart rate irregular [Unknown]
  - Nausea [Recovering/Resolving]
  - Feeling jittery [Unknown]
  - Fatigue [Recovering/Resolving]
  - Dehydration [Unknown]
  - Insomnia [Recovering/Resolving]
  - Decreased appetite [Unknown]
  - Feeling of body temperature change [Recovering/Resolving]
  - Lethargy [Recovering/Resolving]
  - Off label use [Unknown]
